FAERS Safety Report 5258282-2 (Version None)
Quarter: 2007Q1

REPORT INFORMATION
  Report Type: 
  Country: None (occurrence: None)
  Receive Date: 20070306
  Receipt Date: 20070306
  Transmission Date: 20070707
  Serious: No
  Sender: FDA-Public Use
  Company Number: None

PATIENT

DRUGS (2)
  1. NAFCILLIN SODIUM [Suspect]
  2. AMPICILLIN [Suspect]

REACTIONS (1)
  - MEDICATION ERROR [None]
